FAERS Safety Report 10435322 (Version 1)
Quarter: 2014Q3

REPORT INFORMATION
  Report Type: Report from Study
  Country: US (occurrence: US)
  Receive Date: 20140908
  Receipt Date: 20140908
  Transmission Date: 20150326
  Serious: Yes (Death, Other)
  Sender: FDA-Public Use
  Company Number: US-ROCHE-1454036

PATIENT

DRUGS (10)
  1. RITUXIMAB [Suspect]
     Active Substance: RITUXIMAB
     Dosage: 100 MG/H, INCREASE IN 100-MG/H INCREMENTS NO LESS THAN EVERY 30 MIN TO A MAXIMUM OF 400 MG/H ON DAY
     Route: 042
  2. RITUXIMAB [Suspect]
     Active Substance: RITUXIMAB
     Indication: CHRONIC LYMPHOCYTIC LEUKAEMIA RECURRENT
     Dosage: OVER 4 H WITHOUT DOSE-RATE ESCALATIONON DAY 1 OF CYCLE 1
     Route: 042
  3. CYCLOPHOSPHAMIDE. [Suspect]
     Active Substance: CYCLOPHOSPHAMIDE
     Indication: CHRONIC LYMPHOCYTIC LEUKAEMIA RECURRENT
     Dosage: OVER AT LEAST 10-30 MIN ON DAYS 2-4 OF CYCLE 1 AND ON DAYS 1-3 OF CYCLES 2-6
     Route: 042
  4. LUMILIXIMAB [Suspect]
     Active Substance: UNSPECIFIED INGREDIENT
     Indication: CHRONIC LYMPHOCYTIC LEUKAEMIA RECURRENT
     Dosage: OVER 4 H WITHOUT DOSE-RATE ESCALATION ON DAY 2 OF CYCLE 1
     Route: 042
  5. LUMILIXIMAB [Suspect]
     Active Substance: UNSPECIFIED INGREDIENT
     Dosage: 50 MG/H DURING THE FIRST HOUR, INCREASED BY 50-MG/H INCREMENTS EVERY 30 MIN TO A MAXIMUM OF 400 MG/H
     Route: 042
  6. COTRIMOXAZOLE [Concomitant]
     Active Substance: SULFAMETHOXAZOLE\TRIMETHOPRIM
     Indication: INFECTION PROPHYLAXIS
     Route: 065
  7. RITUXIMAB [Suspect]
     Active Substance: RITUXIMAB
     Dosage: 50 MG/H DURING THE FIRST HOUR, INCREASED BY 50-MG/H INCREMENTS EVERY 30 MIN TO A MAXIMUM OF 400 MG/H
     Route: 042
  8. LUMILIXIMAB [Suspect]
     Active Substance: UNSPECIFIED INGREDIENT
     Dosage: OVER A MINIMUM PERIOD OF 2 H WITHOUT DOSE-RATE ESCALATION ON DAY 1 OF CYCLES 2-6
     Route: 042
  9. ACYCLOVIR. [Concomitant]
     Active Substance: ACYCLOVIR
     Indication: ANTIVIRAL PROPHYLAXIS
     Route: 065
  10. FLUDARABINE [Suspect]
     Active Substance: FLUDARABINE PHOSPHATE
     Indication: CHRONIC LYMPHOCYTIC LEUKAEMIA RECURRENT
     Dosage: OVER AT LEAST 10-30 MIN ON DAYS 2-4 OF CYCLE 1 AND ON DAYS 1-3 OF CYCLES 2-6.
     Route: 042

REACTIONS (8)
  - Thrombocytopenia [Unknown]
  - Infection [Fatal]
  - Pneumonia [Unknown]
  - Pancytopenia [Fatal]
  - Neutropenia [Fatal]
  - Anaemia [Fatal]
  - Febrile neutropenia [Unknown]
  - Leukopenia [Fatal]
